FAERS Safety Report 9061846 (Version 1)
Quarter: 2013Q1

REPORT INFORMATION
  Report Type: Report from Study
  Country: US (occurrence: US)
  Receive Date: 20130129
  Receipt Date: 20130129
  Transmission Date: 20140127
  Serious: No
  Sender: FDA-Public Use
  Company Number: US-ABBOTT-12P-163-0939525-00

PATIENT
  Sex: Female
  Weight: 53.57 kg

DRUGS (5)
  1. HUMIRA 40 MG/0.8 ML PEN [Suspect]
     Indication: CROHN^S DISEASE
     Dates: start: 200806
  2. DIGOXIN [Concomitant]
     Indication: HEART RATE IRREGULAR
  3. SERTRALINE [Concomitant]
     Indication: FRUSTRATION
  4. SERTRALINE [Concomitant]
     Indication: PSYCHOMOTOR HYPERACTIVITY
  5. UNNAMED MEDICATIONS [Concomitant]
     Indication: SUPPLEMENTATION THERAPY

REACTIONS (6)
  - Weight increased [Not Recovered/Not Resolved]
  - Increased appetite [Not Recovered/Not Resolved]
  - Gastric hypertonia [Recovered/Resolved]
  - Abdominal pain upper [Recovering/Resolving]
  - Therapeutic response unexpected [Not Recovered/Not Resolved]
  - Gastric infection [Recovered/Resolved]
